FAERS Safety Report 6988705-X (Version None)
Quarter: 2010Q3

REPORT INFORMATION
  Report Type: 
  Country: None (occurrence: None)
  Receive Date: 20100916
  Receipt Date: 20100908
  Transmission Date: 20110219
  Serious: Yes (Hospitalization)
  Sender: FDA-Public Use
  Company Number: PHEH2009US05161

PATIENT
  Sex: Female
  Weight: 90.703 kg

DRUGS (10)
  1. RECLAST [Suspect]
     Indication: OSTEOPOROSIS
     Dosage: 5 MG, YEARLY IV
     Dates: start: 20090507
  2. METFORMIN [Concomitant]
  3. HYDROCHLOROTHIAZIDE [Concomitant]
  4. AMLODIPINE BESYLATE AND BENAZEPRIL HYDROCHLORIDE [Concomitant]
  5. LOVASTATIN [Concomitant]
  6. AMITRIPTYLINE HCL [Concomitant]
  7. ALBUTEROL [Concomitant]
  8. ADVAIR DISKUS 100/50 [Concomitant]
  9. CALCIUM [Concomitant]
  10. FISH OIL [Concomitant]

REACTIONS (4)
  - BLOOD CHLORIDE DECREASED [None]
  - HYPONATRAEMIA [None]
  - NAUSEA [None]
  - VOMITING [None]
